FAERS Safety Report 10543048 (Version 1)
Quarter: 2014Q4

REPORT INFORMATION
  Report Type: Spontaneous
  Country: US (occurrence: None)
  Receive Date: 20141024
  Receipt Date: 20141024
  Transmission Date: 20150529
  Serious: Yes (Other)
  Sender: FDA-Public Use
  Company Number: None

PATIENT
  Sex: Female

DRUGS (1)
  1. DILAUDID [Suspect]
     Active Substance: HYDROMORPHONE HYDROCHLORIDE
     Indication: ILL-DEFINED DISORDER
     Dates: start: 20141016

REACTIONS (2)
  - Product package associated injury [None]
  - Product packaging issue [None]

NARRATIVE: CASE EVENT DATE: 20141016
